FAERS Safety Report 5380921-6 (Version None)
Quarter: 2007Q3

REPORT INFORMATION
  Report Type: 
  Country: None (occurrence: None)
  Receive Date: 20070706
  Receipt Date: 20070626
  Transmission Date: 20080115
  Serious: Yes (Hospitalization)
  Sender: FDA-Public Use
  Company Number: US-ELI_LILLY_AND_COMPANY-US200705001287

PATIENT
  Sex: Male

DRUGS (3)
  1. ILETIN [Suspect]
     Indication: DIABETES MELLITUS
     Dosage: UNK, UNKNOWN
  2. HUMALOG [Suspect]
     Indication: DIABETES MELLITUS
     Dosage: UNK, UNKNOWN
     Dates: start: 19960101
  3. LANTUS [Concomitant]
     Dosage: UNK, UNKNOWN

REACTIONS (2)
  - ACETONAEMIA [None]
  - MEMORY IMPAIRMENT [None]
